FAERS Safety Report 23970637 (Version 2)
Quarter: 2024Q3

REPORT INFORMATION
  Report Type: Spontaneous
  Country: NL (occurrence: NL)
  Receive Date: 20240613
  Receipt Date: 20240704
  Transmission Date: 20241017
  Serious: Yes (Hospitalization)
  Sender: BAXTER
  Company Number: None

PATIENT
  Age: 52 Year
  Sex: Female
  Weight: 85 kg

DRUGS (1)
  1. DOXORUBICIN [Suspect]
     Active Substance: DOXORUBICIN
     Indication: Triple negative breast cancer
     Dosage: 1 DOSAGE FORM, INFUSION, 1 MG/MG (MILLIGRAM PER MILLIGRAM)
     Route: 065
     Dates: start: 20240104

REACTIONS (1)
  - Skin irritation [Recovered/Resolved]
